FAERS Safety Report 22018052 (Version 1)
Quarter: 2023Q1

REPORT INFORMATION
  Report Type: Spontaneous
  Country: AU (occurrence: AU)
  Receive Date: 20230221
  Receipt Date: 20230221
  Transmission Date: 20230418
  Serious: Yes (Hospitalization, Other)
  Sender: FDA-Public Use
  Company Number: AU-ALLERGAN-2304564US

PATIENT
  Sex: Male

DRUGS (1)
  1. FML [Suspect]
     Active Substance: FLUOROMETHOLONE
     Indication: Product used for unknown indication
     Dosage: UNK
     Dates: start: 20230210

REACTIONS (7)
  - Blindness [Unknown]
  - Pain [Unknown]
  - Blepharitis [Unknown]
  - Ectropion [Unknown]
  - Disorder of globe [Unknown]
  - Decreased appetite [Unknown]
  - Ocular hyperaemia [Unknown]

NARRATIVE: CASE EVENT DATE: 20230201
